FAERS Safety Report 7438145-4 (Version None)
Quarter: 2011Q2

REPORT INFORMATION
  Report Type: 
  Country: None (occurrence: None)
  Receive Date: 20110426
  Receipt Date: 20110415
  Transmission Date: 20111010
  Serious: Yes (Death)
  Sender: FDA-Public Use
  Company Number: JP-AMGEN-JPNCT2011017863

PATIENT
  Age: 78 Year
  Sex: Female
  Weight: 36 kg

DRUGS (7)
  1. FLUOROURACIL [Concomitant]
     Dosage: 700 MG, Q2WK
     Route: 041
     Dates: start: 20101110, end: 20110105
  2. CALCIUM LEVOFOLINATE [Concomitant]
     Indication: COLORECTAL CANCER
     Dosage: 240 MG, Q2WK
     Route: 041
     Dates: start: 20101110, end: 20110105
  3. MINOMYCIN [Concomitant]
     Route: 048
  4. PANITUMUMAB [Suspect]
     Indication: COLORECTAL CANCER
     Dosage: 6 MG/KG, Q2WK
     Route: 041
     Dates: start: 20101110, end: 20110105
  5. FLUOROURACIL [Concomitant]
     Indication: COLORECTAL CANCER
     Dosage: 150 MG, Q2WK
     Route: 040
     Dates: start: 20101110, end: 20110105
  6. OXALIPLATIN [Concomitant]
     Indication: COLORECTAL CANCER
     Route: 041
     Dates: start: 20101110, end: 20110105
  7. CORTICOSTEROIDS [Concomitant]
     Indication: PROPHYLAXIS
     Dosage: UNK
     Route: 065

REACTIONS (1)
  - DEATH [None]
